FAERS Safety Report 8153350-X (Version None)
Quarter: 2012Q1

REPORT INFORMATION
  Report Type: 
  Country: None (occurrence: None)
  Receive Date: 20120221
  Receipt Date: 20120214
  Transmission Date: 20120608
  Serious: No
  Sender: FDA-Public Use
  Company Number: US-PFIZER INC-2012040630

PATIENT
  Sex: Female
  Weight: 61.2 kg

DRUGS (5)
  1. CELEBREX [Suspect]
     Indication: SPINAL OSTEOARTHRITIS
     Dosage: 100 MG, DAILY
  2. CELEBREX [Suspect]
     Dosage: 100 MG, DAILY
     Dates: start: 20120208
  3. CELEBREX [Suspect]
     Dosage: 200 MG, DAILY
  4. METFORMIN [Concomitant]
     Indication: DIABETES MELLITUS
     Dosage: 500 MG, 2X/DAY
  5. CARISOPRODOL [Concomitant]
     Indication: SLEEP DISORDER
     Dosage: UNKN, DAILY

REACTIONS (3)
  - PAIN [None]
  - INCORRECT DOSE ADMINISTERED [None]
  - WEIGHT DECREASED [None]
